FAERS Safety Report 8761862 (Version 2)
Quarter: 2012Q4

REPORT INFORMATION
  Report Type: Spontaneous
  Country: US (occurrence: None)
  Receive Date: 20120822
  Receipt Date: 20120907
  Transmission Date: 20130627
  Serious: Yes (Other)
  Sender: FDA-Public Use
  Company Number: JPI-P-023962

PATIENT
  Age: 41 Year
  Sex: Female

DRUGS (15)
  1. XYREM [Suspect]
     Indication: DRUG USE FOR UNKNOWN INDICATION
     Dosage: 4.5 gm (2.25 gm,2 in 1 D),Oral
     Route: 048
     Dates: start: 20050630
  2. XYREM [Suspect]
     Indication: HYPERSOMNIA
     Dosage: 4.5 gm (2.25 gm,2 in 1 D),Oral
     Route: 048
     Dates: start: 20050630
  3. XYREM [Suspect]
     Indication: SLEEP DISORDER
     Dosage: 4.5 gm (2.25 gm,2 in 1 D),Oral
     Route: 048
     Dates: start: 20050630
  4. XYREM [Suspect]
     Indication: DRUG USE FOR UNKNOWN INDICATION
     Dosage: 4.5 gm (2.25 gm,2 in 1 D),Oral
     Route: 048
     Dates: start: 2011
  5. XYREM [Suspect]
     Indication: HYPERSOMNIA
     Dosage: 4.5 gm (2.25 gm,2 in 1 D),Oral
     Route: 048
     Dates: start: 2011
  6. XYREM [Suspect]
     Indication: SLEEP DISORDER
     Dosage: 4.5 gm (2.25 gm,2 in 1 D),Oral
     Route: 048
     Dates: start: 2011
  7. XYREM [Suspect]
     Indication: DRUG USE FOR UNKNOWN INDICATION
  8. XYREM [Suspect]
     Indication: HYPERSOMNIA
  9. XYREM [Suspect]
     Indication: SLEEP DISORDER
  10. XYREM [Suspect]
     Indication: DRUG USE FOR UNKNOWN INDICATION
  11. XYREM [Suspect]
     Indication: HYPERSOMNIA
  12. XYREM [Suspect]
     Indication: SLEEP DISORDER
  13. HYDROMORPHONE [Concomitant]
  14. ARMODAFINIL [Concomitant]
  15. GABAPENTIN [Concomitant]

REACTIONS (1)
  - Knee operation [None]
